FAERS Safety Report 8758349 (Version 2)
Quarter: 2012Q4

REPORT INFORMATION
  Report Type: 
  Country: JP (occurrence: JP)
  Receive Date: 20120829
  Receipt Date: 20120913
  Transmission Date: 20130627
  Serious: Yes (Death)
  Sender: FDA-Public Use
  Company Number: JP-AMGEN-JPNSP2012053601

PATIENT
  Age: 69 Year
  Sex: Male
  Weight: 80 kg

DRUGS (10)
  1. ENBREL [Suspect]
     Indication: RHEUMATOID ARTHRITIS
     Dosage: 25 mg, 2x/week
     Route: 058
     Dates: start: 20050530, end: 200810
  2. ENBREL [Suspect]
     Dosage: 25 mg, weekly
     Route: 058
     Dates: start: 20101012, end: 201207
  3. RHEUMATREX /00113802/ [Concomitant]
     Indication: RHEUMATOID ARTHRITIS
     Dosage: 8 mg, weekly
     Route: 048
  4. FOLIAMIN [Concomitant]
     Indication: RHEUMATOID ARTHRITIS
     Dosage: 5 mg, weekly
     Route: 048
  5. AZULFIDINE [Concomitant]
     Indication: RHEUMATOID ARTHRITIS
     Dosage: 500 mg, UNK
     Route: 048
  6. MINOMYCIN [Concomitant]
     Indication: ARTHRITIS BACTERIAL
     Dosage: 200 mg, UNK
     Route: 048
  7. ACTOS [Concomitant]
     Indication: DIABETES MELLITUS
     Dosage: 30 mg, UNK
     Route: 048
  8. LOXONIN [Concomitant]
     Indication: RHEUMATOID ARTHRITIS
     Dosage: 180 mg, UNK
     Route: 048
  9. MUCOSTA [Concomitant]
     Indication: GASTRITIS
     Dosage: 300 mg, UNK
     Route: 048
  10. MUCOSOLVAN [Concomitant]
     Indication: PNEUMONIA
     Dosage: 45 mg, UNK
     Route: 048

REACTIONS (3)
  - Acute respiratory failure [Fatal]
  - Cardiac failure [Fatal]
  - Pneumonia bacterial [Fatal]
